FAERS Safety Report 7213088-X (Version None)
Quarter: 2011Q1

REPORT INFORMATION
  Report Type: 
  Country: None (occurrence: None)
  Receive Date: 20110106
  Receipt Date: 20110103
  Transmission Date: 20110831
  Serious: No
  Sender: FDA-Public Use
  Company Number: US-PFIZER INC-2011001079

PATIENT
  Sex: Male
  Weight: 99.773 kg

DRUGS (4)
  1. NORVASC [Concomitant]
     Indication: HYPERTENSION
     Dosage: UNK
  2. ATENOLOL [Concomitant]
     Indication: HYPERTENSION
     Dosage: UNK
  3. VIAGRA [Suspect]
     Indication: ERECTILE DYSFUNCTION
     Dosage: UNK
     Route: 048
     Dates: start: 20050101
  4. LIPITOR [Concomitant]
     Indication: VASCULAR GRAFT
     Dosage: UNK
     Dates: start: 20000101

REACTIONS (2)
  - CHROMATOPSIA [None]
  - DRUG EFFECT DECREASED [None]
